FAERS Safety Report 14677225 (Version 1)
Quarter: 2018Q1

REPORT INFORMATION
  Report Type: Spontaneous
  Country: US (occurrence: US)
  Receive Date: 20180323
  Receipt Date: 20180323
  Transmission Date: 20180509
  Serious: Yes (Disabling)
  Sender: FDA-Public Use
  Company Number: None

PATIENT
  Age: 78 Year
  Sex: Male
  Weight: 81.9 kg

DRUGS (12)
  1. LOPERAMIDE HCL [Concomitant]
     Active Substance: LOPERAMIDE HYDROCHLORIDE
  2. METOPROLOL. [Concomitant]
     Active Substance: METOPROLOL
  3. AMLODIPINE [Concomitant]
     Active Substance: AMLODIPINE BESYLATE
  4. TRINTELLIX [Suspect]
     Active Substance: VORTIOXETINE HYDROBROMIDE
     Indication: PRODUCT USED FOR UNKNOWN INDICATION
     Dosage: ?          QUANTITY:1 TABLET(S);?
     Route: 048
     Dates: start: 20180321, end: 20180323
  5. METFORMIN ER [Concomitant]
     Active Substance: METFORMIN HYDROCHLORIDE
  6. LISINOPROL [Concomitant]
     Active Substance: LISINOPRIL
  7. TRAZEDONE [Concomitant]
  8. ZYRTEC [Concomitant]
     Active Substance: CETIRIZINE HYDROCHLORIDE
  9. BRILINTA [Concomitant]
     Active Substance: TICAGRELOR
  10. ZETIA [Concomitant]
     Active Substance: EZETIMIBE
  11. BENADRYL [Concomitant]
     Active Substance: DIPHENHYDRAMINE HYDROCHLORIDE
  12. NITROSTAT [Concomitant]
     Active Substance: NITROGLYCERIN

REACTIONS (2)
  - Nausea [None]
  - Hypoacusis [None]

NARRATIVE: CASE EVENT DATE: 20180323
